FAERS Safety Report 6186541-8 (Version None)
Quarter: 2009Q2

REPORT INFORMATION
  Report Type: 
  Country: None (occurrence: None)
  Receive Date: 20090507
  Receipt Date: 20090507
  Transmission Date: 20091009
  Serious: Yes (Life-Threatening, Other)
  Sender: FDA-Public Use
  Company Number: None

PATIENT
  Age: 71 Year
  Sex: Female
  Weight: 49.8957 kg

DRUGS (1)
  1. TAXOTERE [Suspect]
     Indication: LUNG CARCINOMA CELL TYPE UNSPECIFIED STAGE IV
     Dosage: 46 MG WEEKLY IV
     Route: 042
     Dates: start: 20090501, end: 20090501

REACTIONS (6)
  - CONVULSION [None]
  - DYSKINESIA [None]
  - DYSPNOEA [None]
  - FLUSHING [None]
  - HYPERHIDROSIS [None]
  - UNRESPONSIVE TO STIMULI [None]
